FAERS Safety Report 4685966-7 (Version None)
Quarter: 2005Q2

REPORT INFORMATION
  Report Type: 
  Country: None (occurrence: None)
  Receive Date: 20050607
  Receipt Date: 20050607
  Transmission Date: 20051028
  Serious: Yes (Hospitalization)
  Sender: FDA-Public Use
  Company Number: None

PATIENT
  Age: 70 Year
  Sex: Male
  Weight: 91.7627 kg

DRUGS (1)
  1. FOSINOPRIL  40 MG [Suspect]
     Indication: HYPERTENSION
     Dosage: 40 MG DAILY ORAL
     Route: 048
     Dates: start: 20050408, end: 20050520

REACTIONS (2)
  - BLOOD POTASSIUM INCREASED [None]
  - OEDEMA [None]
